FAERS Safety Report 10392841 (Version 1)
Quarter: 2014Q3

REPORT INFORMATION
  Report Type: Spontaneous
  Country: KE (occurrence: KE)
  Receive Date: 20140819
  Receipt Date: 20140819
  Transmission Date: 20150326
  Serious: Yes (Hospitalization)
  Sender: FDA-Public Use
  Company Number: KE-SA-2014SA109425

PATIENT
  Age: 60 Year
  Sex: Female

DRUGS (2)
  1. AMARYL [Suspect]
     Active Substance: GLIMEPIRIDE
     Indication: HYPERGLYCAEMIA
     Route: 048
  2. METFORMIN [Concomitant]
     Active Substance: METFORMIN HYDROCHLORIDE
     Indication: HYPERGLYCAEMIA

REACTIONS (3)
  - Paralysis [Unknown]
  - Cerebrovascular accident [Unknown]
  - Hypoglycaemia [Not Recovered/Not Resolved]

NARRATIVE: CASE EVENT DATE: 20140807
